FAERS Safety Report 6233963-2 (Version None)
Quarter: 2009Q2

REPORT INFORMATION
  Report Type: 
  Country: None (occurrence: None)
  Receive Date: 20090618
  Receipt Date: 20090501
  Transmission Date: 20091009
  Serious: Yes (Death)
  Sender: FDA-Public Use
  Company Number: US-BAYER-200920104NA

PATIENT
  Age: 15 Year
  Sex: Male
  Weight: 35 kg

DRUGS (3)
  1. MAGNEVIST [Suspect]
     Indication: ANGIOGRAM
     Route: 042
     Dates: start: 20050507, end: 20050507
  2. MAGNEVIST [Suspect]
     Dates: start: 20030710, end: 20030710
  3. MAGNEVIST [Suspect]
     Dates: start: 20050702, end: 20050702

REACTIONS (16)
  - APHAGIA [None]
  - ARTERIOSCLEROSIS [None]
  - BURNING SENSATION [None]
  - FAECAL INCONTINENCE [None]
  - JOINT CONTRACTURE [None]
  - JOINT LOCK [None]
  - MOBILITY DECREASED [None]
  - MUSCLE CONTRACTIONS INVOLUNTARY [None]
  - NEPHROGENIC SYSTEMIC FIBROSIS [None]
  - OEDEMA PERIPHERAL [None]
  - PAIN [None]
  - SKIN EXFOLIATION [None]
  - SKIN INDURATION [None]
  - SPEECH DISORDER [None]
  - SWELLING [None]
  - TRISMUS [None]
